FAERS Safety Report 9373076 (Version 1)
Quarter: 2013Q2

REPORT INFORMATION
  Report Type: Spontaneous
  Country: US (occurrence: None)
  Receive Date: 20130625
  Receipt Date: 20130625
  Transmission Date: 20140414
  Serious: Yes (Death, Hospitalization)
  Sender: FDA-Public Use
  Company Number: CLON20130009

PATIENT
  Age: 51 Year
  Sex: Male

DRUGS (4)
  1. CLONIDINE HCL [Suspect]
     Indication: DRUG DETOXIFICATION
  2. PROPOFOL (PROPOFOL) [Suspect]
     Indication: DRUG DETOXIFICATION
  3. SEVOFLURANE [Suspect]
     Indication: DRUG DETOXIFICATION
  4. NALOXONE [Suspect]
     Indication: DRUG DETOXIFICATION

REACTIONS (6)
  - Ventricular fibrillation [None]
  - Hypokalaemia [None]
  - Agitation [None]
  - Hypertension [None]
  - Tachycardia [None]
  - Hypoxic-ischaemic encephalopathy [None]
